FAERS Safety Report 10562461 (Version 2)
Quarter: 2014Q4

REPORT INFORMATION
  Report Type: Spontaneous
  Country: US (occurrence: US)
  Receive Date: 20141104
  Receipt Date: 20141208
  Transmission Date: 20150529
  Serious: Yes (Other)
  Sender: FDA-Public Use
  Company Number: US-DRREDDYS-USA/USA/14/0043979

PATIENT
  Sex: Female

DRUGS (2)
  1. AUGMENTIN [Suspect]
     Active Substance: AMOXICILLIN\CLAVULANATE POTASSIUM
     Indication: LYME DISEASE
  2. AUGMENTIN [Suspect]
     Active Substance: AMOXICILLIN\CLAVULANATE POTASSIUM
     Indication: SINUSITIS
     Route: 065

REACTIONS (8)
  - Condition aggravated [Recovering/Resolving]
  - Fibromyalgia [Recovering/Resolving]
  - Sinusitis [Recovering/Resolving]
  - Product quality issue [Unknown]
  - Lyme disease [Recovering/Resolving]
  - Bartonellosis [Recovering/Resolving]
  - Cystitis [Recovering/Resolving]
  - Conjunctivitis [Recovering/Resolving]
